FAERS Safety Report 6875781-8 (Version None)
Quarter: 2010Q3

REPORT INFORMATION
  Report Type: 
  Country: None (occurrence: None)
  Receive Date: 20100727
  Receipt Date: 20070910
  Transmission Date: 20110219
  Serious: Yes (Hospitalization, Other)
  Sender: FDA-Public Use
  Company Number: US-PFIZER INC-2006122400

PATIENT
  Sex: Female
  Weight: 74.8 kg

DRUGS (7)
  1. CELEBREX [Suspect]
     Indication: PAIN
     Dates: start: 19990501, end: 20010516
  2. VIOXX [Suspect]
     Indication: ARTHRITIS
     Route: 048
     Dates: start: 19990501
  3. FUROSEMIDE [Concomitant]
     Dates: start: 19991230, end: 20021010
  4. ACETYLSALICYLIC ACID SRT [Concomitant]
     Dates: start: 19990101
  5. DIAZEPAM [Concomitant]
     Dates: start: 19991123
  6. VICODIN [Concomitant]
     Dates: start: 20000124, end: 20020915
  7. ADIPEX [Concomitant]
     Dates: start: 20000101

REACTIONS (1)
  - CEREBROVASCULAR ACCIDENT [None]
